FAERS Safety Report 11077498 (Version 2)
Quarter: 2015Q2

REPORT INFORMATION
  Report Type: Spontaneous
  Country: US (occurrence: US)
  Receive Date: 20150430
  Receipt Date: 20150526
  Transmission Date: 20150821
  Serious: No
  Sender: FDA-Public Use
  Company Number: US-JNJFOC-20150210214

PATIENT
  Age: 79 Year
  Sex: Male
  Weight: 72.58 kg

DRUGS (21)
  1. COUMADIN [Concomitant]
     Active Substance: WARFARIN SODIUM
     Indication: ARRHYTHMIA
     Route: 065
     Dates: start: 201305
  2. DIGOXIN. [Concomitant]
     Active Substance: DIGOXIN
     Indication: ATRIAL FIBRILLATION
     Route: 065
  3. CENTRUM SILVER [Concomitant]
     Active Substance: VITAMINS
     Indication: NUTRITIONAL SUPPLEMENTATION
     Route: 065
  4. VALIUM [Concomitant]
     Active Substance: DIAZEPAM
     Indication: INTERVERTEBRAL DISC DEGENERATION
     Dosage: 1/2 TABLET
     Route: 065
  5. GLUCOPHAGE [Concomitant]
     Active Substance: METFORMIN HYDROCHLORIDE
     Indication: DIABETES MELLITUS
     Route: 065
  6. DIGOXIN. [Concomitant]
     Active Substance: DIGOXIN
     Indication: CARDIAC DISORDER
     Route: 065
  7. PSYLLIUM [Concomitant]
     Active Substance: PLANTAGO SEED
     Indication: NUTRITIONAL SUPPLEMENTATION
     Route: 065
     Dates: start: 2014
  8. JARRODOPHILUS [Concomitant]
     Indication: NUTRITIONAL SUPPLEMENTATION
     Route: 065
     Dates: start: 2014
  9. LAMADOL [Concomitant]
     Indication: DIARRHOEA
     Route: 065
     Dates: start: 2014
  10. MICARDIS [Concomitant]
     Active Substance: TELMISARTAN
     Indication: CARDIAC DISORDER
     Route: 065
  11. SYNTHROID [Concomitant]
     Active Substance: LEVOTHYROXINE SODIUM
     Indication: THYROID DISORDER
     Route: 065
  12. FOLIC ACID. [Concomitant]
     Active Substance: FOLIC ACID
     Indication: NUTRITIONAL SUPPLEMENTATION
     Dosage: 800 MCG
     Route: 065
  13. BIOTIN [Concomitant]
     Active Substance: BIOTIN
     Indication: NUTRITIONAL SUPPLEMENTATION
     Dosage: 1000 MCG
     Route: 065
  14. LASIX [Concomitant]
     Active Substance: FUROSEMIDE
     Indication: OEDEMA
     Route: 065
     Dates: start: 201412
  15. TYLENOL WITH CODEINE [Suspect]
     Active Substance: ACETAMINOPHEN\CODEINE PHOSPHATE
     Indication: INTERVERTEBRAL DISC DEGENERATION
     Dosage: 300MG/30MG, AS NEEDED
     Route: 048
  16. TYLENOL WITH CODEINE [Suspect]
     Active Substance: ACETAMINOPHEN\CODEINE PHOSPHATE
     Indication: ARTHRITIS
     Dosage: 300MG/30MG, AS NEEDED
     Route: 048
  17. MAXZIDE [Concomitant]
     Active Substance: HYDROCHLOROTHIAZIDE\TRIAMTERENE
     Indication: BLOOD PRESSURE
     Route: 065
  18. PSYLLIUM [Concomitant]
     Active Substance: PLANTAGO SEED
     Indication: IRRITABLE BOWEL SYNDROME
     Route: 065
     Dates: start: 2014
  19. CARDIZEM [Concomitant]
     Active Substance: DILTIAZEM HYDROCHLORIDE
     Indication: CARDIAC DISORDER
     Route: 065
  20. COUMADIN [Concomitant]
     Active Substance: WARFARIN SODIUM
     Indication: ARRHYTHMIA
     Route: 065
     Dates: start: 201305
  21. MICARDIS [Concomitant]
     Active Substance: TELMISARTAN
     Indication: BLOOD PRESSURE
     Route: 065

REACTIONS (4)
  - Drug dose omission [Unknown]
  - Irritable bowel syndrome [Not Recovered/Not Resolved]
  - Drug ineffective [Unknown]
  - Incorrect dose administered [Unknown]

NARRATIVE: CASE EVENT DATE: 20150209
